FAERS Safety Report 20616713 (Version 1)
Quarter: 2022Q1

REPORT INFORMATION
  Report Type: Spontaneous
  Country: US (occurrence: None)
  Receive Date: 20220321
  Receipt Date: 20220321
  Transmission Date: 20220424
  Serious: No
  Sender: FDA-Public Use
  Company Number: None

PATIENT
  Sex: Male

DRUGS (11)
  1. ALBUTEROL [Suspect]
     Active Substance: ALBUTEROL
     Route: 011
  2. ALBUTEROL SULFATE [Concomitant]
  3. CREON CAP [Concomitant]
  4. D3 CAP [Concomitant]
  5. ENSURE PLUS LIQ  CHOCOLAT [Concomitant]
  6. MONTELUKAST SODIUM [Concomitant]
     Active Substance: MONTELUKAST SODIUM
  7. NASACORT ALR SPR [Concomitant]
  8. OMEPRAZOLE [Concomitant]
  9. SODIUM CHLOR NEB [Concomitant]
  10. TYLENOL CAP [Concomitant]
  11. XOPENEX HFA AER [Concomitant]

REACTIONS (1)
  - Influenza [None]
